FAERS Safety Report 9587932 (Version 1)
Quarter: 2013Q4

REPORT INFORMATION
  Report Type: Spontaneous
  Country: JP (occurrence: JP)
  Receive Date: 20131003
  Receipt Date: 20131003
  Transmission Date: 20140711
  Serious: No
  Sender: FDA-Public Use
  Company Number: PHHY2013JP110171

PATIENT
  Sex: Female

DRUGS (2)
  1. VOLTAREN [Suspect]
     Indication: FALL
     Route: 048
  2. LOXONIN [Concomitant]
     Indication: FALL

REACTIONS (4)
  - Hypoaesthesia [Unknown]
  - Limb discomfort [Unknown]
  - Peripheral coldness [Unknown]
  - Pain [Unknown]
